FAERS Safety Report 5218996-7 (Version None)
Quarter: 2007Q1

REPORT INFORMATION
  Report Type: 
  Country: None (occurrence: None)
  Receive Date: 20070125
  Receipt Date: 20070116
  Transmission Date: 20070707
  Serious: Yes (Hospitalization)
  Sender: FDA-Public Use
  Company Number: IN-ROCHE-478590

PATIENT
  Age: 40 Year
  Sex: Female
  Weight: 56 kg

DRUGS (2)
  1. CAPECITABINE [Suspect]
     Route: 048
     Dates: start: 20070108, end: 20070113
  2. DOCETAXEL [Suspect]
     Route: 042
     Dates: start: 20070108

REACTIONS (1)
  - MUCOSAL INFLAMMATION [None]
